FAERS Safety Report 5271888-X (Version None)
Quarter: 2007Q1

REPORT INFORMATION
  Report Type: 
  Country: None (occurrence: None)
  Receive Date: 20070316
  Receipt Date: 20070308
  Transmission Date: 20070707
  Serious: Yes (Hospitalization)
  Sender: FDA-Public Use
  Company Number: GXKR2007IT02399

PATIENT
  Age: 70 Year
  Sex: Male

DRUGS (1)
  1. AMOXICILLIN TRIHYDRATE [Suspect]
     Dosage: 500 MG, ONCE/SINGLE, ORAL
     Route: 048

REACTIONS (6)
  - ANAPHYLACTIC REACTION [None]
  - CIRCULATORY COLLAPSE [None]
  - CORONARY ARTERY STENOSIS [None]
  - FEELING HOT [None]
  - MYOCARDIAL INFARCTION [None]
  - VENTRICULAR HYPOKINESIA [None]
